FAERS Safety Report 13431302 (Version 3)
Quarter: 2017Q4

REPORT INFORMATION
  Report Type: Report from Study
  Country: FR (occurrence: FR)
  Receive Date: 20170412
  Receipt Date: 20171228
  Transmission Date: 20180320
  Serious: Yes (Other)
  Sender: FDA-Public Use
  Company Number: FR-ASTELLAS-2017US013355

PATIENT
  Age: 76 Year
  Sex: Male

DRUGS (24)
  1. TACROLIMUS. [Suspect]
     Active Substance: TACROLIMUS
     Route: 065
     Dates: start: 20161229
  2. SOLU-MEDROL [Concomitant]
     Active Substance: METHYLPREDNISOLONE SODIUM SUCCINATE
     Indication: IMMUNOSUPPRESSION
     Dosage: 5 UNSECIFIED UNIT, ONCE DAILY
     Route: 065
     Dates: start: 20170108, end: 20170109
  3. TACROLIMUS. [Suspect]
     Active Substance: TACROLIMUS
     Route: 065
     Dates: start: 20161227
  4. TACROLIMUS. [Suspect]
     Active Substance: TACROLIMUS
     Route: 065
     Dates: start: 20170114
  5. TACROLIMUS. [Suspect]
     Active Substance: TACROLIMUS
     Route: 065
     Dates: start: 20170210
  6. CORTANCYL [Concomitant]
     Active Substance: PREDNISONE
     Indication: IMMUNOSUPPRESSION
     Dosage: 5 UNSPECIFIED UNIT, ONCE DAILY
     Route: 065
     Dates: start: 20111214, end: 20161224
  7. CERTICAN [Concomitant]
     Active Substance: EVEROLIMUS
     Indication: IMMUNOSUPPRESSION
     Dosage: 1.25 UNSPECIFIED UNIT, ONCE DAILY
     Route: 065
     Dates: start: 20140703, end: 20161224
  8. CELLCEPT [Concomitant]
     Active Substance: MYCOPHENOLATE MOFETIL\MYCOPHENOLATE MOFETIL HYDROCHLORIDE
     Dosage: 500 UNSPECIFIED UNIT, ONCE DAILY
     Route: 065
     Dates: start: 20170127, end: 20170128
  9. TACROLIMUS. [Suspect]
     Active Substance: TACROLIMUS
     Route: 065
     Dates: start: 20170321
  10. CORTANCYL [Concomitant]
     Active Substance: PREDNISONE
     Dosage: 5 UNSPECIFIED UNIT, ONCE DAILY
     Route: 065
     Dates: start: 20161231, end: 20170107
  11. TACROLIMUS. [Suspect]
     Active Substance: TACROLIMUS
     Indication: RENAL TRANSPLANT
     Route: 065
     Dates: start: 20160408
  12. TACROLIMUS. [Suspect]
     Active Substance: TACROLIMUS
     Route: 065
     Dates: start: 20170204
  13. CORTANCYL [Concomitant]
     Active Substance: PREDNISONE
     Dosage: 10 UNSPECIFIED UNIT ONCE DAILY
     Route: 065
     Dates: start: 20161225, end: 20161230
  14. TACROLIMUS. [Suspect]
     Active Substance: TACROLIMUS
     Dosage: 0.5 MG, ONCE DAILY
     Route: 065
     Dates: start: 20161231
  15. TACROLIMUS. [Suspect]
     Active Substance: TACROLIMUS
     Route: 065
     Dates: start: 20170103
  16. TACROLIMUS. [Suspect]
     Active Substance: TACROLIMUS
     Route: 065
     Dates: start: 20170214
  17. TACROLIMUS. [Suspect]
     Active Substance: TACROLIMUS
     Route: 065
     Dates: start: 20170225
  18. CELLCEPT [Concomitant]
     Active Substance: MYCOPHENOLATE MOFETIL\MYCOPHENOLATE MOFETIL HYDROCHLORIDE
     Indication: IMMUNOSUPPRESSION
     Dosage: 500 UNSPECIFIED UNIT ONCE DAILY
     Route: 065
     Dates: start: 20161229, end: 20161229
  19. CELLCEPT [Concomitant]
     Active Substance: MYCOPHENOLATE MOFETIL\MYCOPHENOLATE MOFETIL HYDROCHLORIDE
     Dosage: 1000 UNSPECIFIED UNIT, ONCE DAILY
     Route: 065
     Dates: start: 20161230, end: 20170126
  20. CELLCEPT [Concomitant]
     Active Substance: MYCOPHENOLATE MOFETIL\MYCOPHENOLATE MOFETIL HYDROCHLORIDE
     Dosage: 1000 UNSPECIFIED UNIT, ONCE DAILY
     Route: 065
     Dates: start: 20170129
  21. TACROLIMUS. [Suspect]
     Active Substance: TACROLIMUS
     Route: 065
     Dates: start: 20170311
  22. CERTICAN [Concomitant]
     Active Substance: EVEROLIMUS
     Dosage: 0.5 UNSPECIFIED UNIT, ONCE DAILY
     Route: 065
     Dates: start: 20161225, end: 20161225
  23. TACROLIMUS. [Suspect]
     Active Substance: TACROLIMUS
     Route: 065
     Dates: start: 20170106
  24. CORTANCYL [Concomitant]
     Active Substance: PREDNISONE
     Dosage: 5 UNSPECIFIED UNIT, ONCE DAILY
     Route: 065
     Dates: start: 20170110

REACTIONS (2)
  - Cytomegalovirus infection [Recovered/Resolved]
  - Renal tubular disorder [Not Recovered/Not Resolved]

NARRATIVE: CASE EVENT DATE: 20170113
